FAERS Safety Report 9901563 (Version 2)
Quarter: 2014Q2

REPORT INFORMATION
  Report Type: Spontaneous
  Country: AU (occurrence: AU)
  Receive Date: 20140217
  Receipt Date: 20140520
  Transmission Date: 20141212
  Serious: Yes (Other)
  Sender: FDA-Public Use
  Company Number: AU-BAYER-2014-019907

PATIENT
  Sex: Female

DRUGS (2)
  1. CANESTEN 1% CREAM - 6 DAY CREAM WITH 2% BA [Suspect]
  2. OESTROGEN [Concomitant]

REACTIONS (3)
  - Vulvovaginal injury [None]
  - Vulvovaginal pain [None]
  - Vaginal haemorrhage [None]
